FAERS Safety Report 5460564-6 (Version None)
Quarter: 2007Q3

REPORT INFORMATION
  Report Type: 
  Country: None (occurrence: None)
  Receive Date: 20070919
  Receipt Date: 20070910
  Transmission Date: 20080115
  Serious: Yes (Death, Hospitalization)
  Sender: FDA-Public Use
  Company Number: US-PFIZER INC-2006150488

PATIENT
  Sex: Female
  Weight: 61.2 kg

DRUGS (4)
  1. CELEBREX [Suspect]
     Indication: ARTHRITIS
     Dosage: TEXT:100MG AND 200MG-FREQ:INTERMITTENTLY ONCE OR TWICE DAILY
     Route: 048
     Dates: start: 19990610, end: 19990823
  2. CELEBREX [Suspect]
     Indication: PAIN
  3. BEXTRA [Suspect]
     Route: 048
  4. VIOXX [Suspect]
     Route: 048

REACTIONS (4)
  - BRONCHIAL HYPERREACTIVITY [None]
  - CARDIAC ARREST [None]
  - MYOCARDIAL INFARCTION [None]
  - RESPIRATORY ARREST [None]
